FAERS Safety Report 14531344 (Version 1)
Quarter: 2018Q1

REPORT INFORMATION
  Report Type: Other
  Country: FR (occurrence: FR)
  Receive Date: 20180214
  Receipt Date: 20180214
  Transmission Date: 20180509
  Serious: Yes (Other)
  Sender: FDA-Public Use
  Company Number: FR-CELLTRION INC.-2018FR017929

PATIENT

DRUGS (10)
  1. COAPROVEL [Concomitant]
     Active Substance: HYDROCHLOROTHIAZIDE\IRBESARTAN
  2. DIAMICRON [Concomitant]
     Active Substance: GLICLAZIDE
  3. INFLECTRA [Suspect]
     Active Substance: INFLIXIMAB-DYYB
     Dosage: 5 MG/KG
     Route: 042
     Dates: start: 20180117, end: 20180117
  4. XARELTO [Concomitant]
     Active Substance: RIVAROXABAN
  5. PENTASA [Concomitant]
     Active Substance: MESALAMINE
  6. JANUMET [Concomitant]
     Active Substance: METFORMIN HYDROCHLORIDE\SITAGLIPTIN PHOSPHATE
  7. TAHOR [Concomitant]
     Active Substance: ATORVASTATIN CALCIUM
  8. CARDENSIEL [Concomitant]
     Active Substance: BISOPROLOL FUMARATE
  9. AMLOR [Concomitant]
     Active Substance: AMLODIPINE BESYLATE
  10. LYRICA [Concomitant]
     Active Substance: PREGABALIN

REACTIONS (5)
  - Dyspnoea [Recovered/Resolved]
  - Hypersensitivity [Recovered/Resolved]
  - Vertigo [Recovered/Resolved]
  - Vasodilatation [Recovered/Resolved]
  - Chest discomfort [Unknown]

NARRATIVE: CASE EVENT DATE: 20180117
